FAERS Safety Report 15769970 (Version 1)
Quarter: 2018Q4

REPORT INFORMATION
  Report Type: Spontaneous
  Country: US (occurrence: US)
  Receive Date: 20181227
  Receipt Date: 20181227
  Transmission Date: 20190205
  Serious: Yes (Disabling)
  Sender: FDA-Public Use
  Company Number: None

PATIENT
  Age: 29 Year
  Sex: Male
  Weight: 78.75 kg

DRUGS (12)
  1. VITAMIN C [Concomitant]
     Active Substance: ASCORBIC ACID
  2. ALPHA LIPOIC ACID [Concomitant]
     Active Substance: .ALPHA.-LIPOIC ACID
  3. MILK THISTLE [Concomitant]
     Active Substance: DIETARY SUPPLEMENT\HERBALS\MILK THISTLE
  4. CURCUMIN ALPHA [Concomitant]
  5. TADALAFIL. [Concomitant]
     Active Substance: TADALAFIL
  6. OMEGA 3 [Concomitant]
     Active Substance: OMEGA-3 FATTY ACIDS
  7. VITAMIN B12 [Concomitant]
     Active Substance: CYANOCOBALAMIN
  8. CIPROFLOXACIN. [Suspect]
     Active Substance: CIPROFLOXACIN
     Indication: BACTERIAL PROSTATITIS
     Dosage: ?          QUANTITY:1 TABLET(S);?
     Route: 048
  9. COQ10 [Concomitant]
     Active Substance: UBIDECARENONE
  10. MULTIVITAMIN D3 [Concomitant]
  11. ZINC. [Concomitant]
     Active Substance: ZINC
  12. MAGNESIUM [Concomitant]
     Active Substance: MAGNESIUM

REACTIONS (11)
  - Tendon disorder [None]
  - Musculoskeletal stiffness [None]
  - Inflammation [None]
  - Arthropathy [None]
  - Asthenia [None]
  - Balance disorder [None]
  - Suicidal ideation [None]
  - Gait disturbance [None]
  - Fatigue [None]
  - Anxiety [None]
  - Depressed mood [None]

NARRATIVE: CASE EVENT DATE: 20181222
